FAERS Safety Report 5688167-9 (Version None)
Quarter: 2008Q1

REPORT INFORMATION
  Report Type: 
  Country: None (occurrence: None)
  Receive Date: 20080327
  Receipt Date: 20080312
  Transmission Date: 20080703
  Serious: Yes (Other)
  Sender: FDA-Public Use
  Company Number: JPI-P-002727

PATIENT
  Age: 14 Year
  Sex: Male

DRUGS (10)
  1. XYREM [Suspect]
     Indication: CATAPLEXY
     Dosage: 9 GM (4.5 GM,2 IN 1 D),ORAL;  8 GM (4 GM, 2 IN 1 D),ORAL
     Route: 048
     Dates: start: 20071101, end: 20070101
  2. XYREM [Suspect]
     Indication: NARCOLEPSY
     Dosage: 9 GM (4.5 GM,2 IN 1 D),ORAL;  8 GM (4 GM, 2 IN 1 D),ORAL
     Route: 048
     Dates: start: 20071101, end: 20070101
  3. XYREM [Suspect]
     Indication: CATAPLEXY
     Dosage: 9 GM (4.5 GM,2 IN 1 D),ORAL;  8 GM (4 GM, 2 IN 1 D),ORAL
     Route: 048
     Dates: start: 20070101, end: 20071210
  4. XYREM [Suspect]
     Indication: NARCOLEPSY
     Dosage: 9 GM (4.5 GM,2 IN 1 D),ORAL;  8 GM (4 GM, 2 IN 1 D),ORAL
     Route: 048
     Dates: start: 20070101, end: 20071210
  5. XYREM [Suspect]
     Indication: CATAPLEXY
     Dosage: 9 GM (4.5 GM,2 IN 1 D),ORAL;  8 GM (4 GM, 2 IN 1 D),ORAL
     Route: 048
     Dates: start: 20071211, end: 20071217
  6. XYREM [Suspect]
     Indication: NARCOLEPSY
     Dosage: 9 GM (4.5 GM,2 IN 1 D),ORAL;  8 GM (4 GM, 2 IN 1 D),ORAL
     Route: 048
     Dates: start: 20071211, end: 20071217
  7. XYREM [Suspect]
     Indication: CATAPLEXY
     Dosage: 9 GM (4.5 GM,2 IN 1 D),ORAL;  8 GM (4 GM, 2 IN 1 D),ORAL
     Route: 048
     Dates: start: 20071218
  8. XYREM [Suspect]
     Indication: NARCOLEPSY
     Dosage: 9 GM (4.5 GM,2 IN 1 D),ORAL;  8 GM (4 GM, 2 IN 1 D),ORAL
     Route: 048
     Dates: start: 20071218
  9. METHYLPHENIDATE HCL [Concomitant]
  10. CLOMIPRAMINE HCL [Concomitant]

REACTIONS (7)
  - ARTHRALGIA [None]
  - ARTHROPATHY [None]
  - DIZZINESS [None]
  - DRUG INEFFECTIVE [None]
  - GROWTH RETARDATION [None]
  - HYPERHIDROSIS [None]
  - SENSORY DISTURBANCE [None]
